FAERS Safety Report 6211141-0 (Version None)
Quarter: 2009Q2

REPORT INFORMATION
  Report Type: 
  Country: None (occurrence: None)
  Receive Date: 20090602
  Receipt Date: 20090521
  Transmission Date: 20091009
  Serious: Yes (Disabling)
  Sender: FDA-Public Use
  Company Number: BR-BAYER-200910927LA

PATIENT
  Age: 49 Year
  Sex: Male

DRUGS (3)
  1. BETAFERON [Suspect]
     Indication: MULTIPLE SCLEROSIS
     Route: 058
     Dates: start: 20060101
  2. CLENIL [Concomitant]
     Indication: ASTHMATIC CRISIS
     Route: 065
     Dates: start: 19790101
  3. DIPROSPAN [Concomitant]
     Indication: ASTHMATIC CRISIS
     Route: 030

REACTIONS (3)
  - HYPOAESTHESIA [None]
  - MUSCLE SPASMS [None]
  - MUSCULAR WEAKNESS [None]
